FAERS Safety Report 4404682-X (Version None)
Quarter: 2004Q3

REPORT INFORMATION
  Report Type: 
  Country: None (occurrence: None)
  Receive Date: 20040722
  Receipt Date: 20031121
  Transmission Date: 20050211
  Serious: Yes (Hospitalization, Other)
  Sender: FDA-Public Use
  Company Number: US-MERCK-0311USA02547

PATIENT
  Age: 57 Year
  Sex: Male
  Weight: 105 kg

DRUGS (18)
  1. TYLENOL W/ CODEINE NO. 3 [Concomitant]
     Route: 065
     Dates: start: 20010101, end: 20020101
  2. ASPIRIN [Concomitant]
     Indication: PROPHYLAXIS
     Route: 065
     Dates: start: 19940101, end: 20020101
  3. ASPIRIN [Concomitant]
     Route: 065
     Dates: start: 20020101
  4. ASPIRIN [Concomitant]
     Indication: RHEUMATOID ARTHRITIS
     Route: 065
     Dates: start: 19940101, end: 20020101
  5. ASPIRIN [Concomitant]
     Route: 065
     Dates: start: 20020101
  6. DIGOXIN [Concomitant]
     Route: 065
  7. LASIX [Concomitant]
     Indication: OEDEMA PERIPHERAL
     Route: 065
     Dates: start: 20000101
  8. LASIX [Concomitant]
     Indication: CARDIAC DISORDER
     Route: 065
     Dates: start: 20000101
  9. MAGNESIUM (UNSPECIFIED) [Concomitant]
     Route: 065
  10. METHOTREXATE [Concomitant]
     Route: 065
     Dates: start: 20020101
  11. PROTONIX [Concomitant]
     Route: 065
  12. DILANTIN [Concomitant]
     Indication: CONVULSION
     Route: 065
     Dates: start: 20010101
  13. K-DUR 10 [Concomitant]
     Route: 065
  14. PREDNISONE [Concomitant]
     Route: 065
  15. PROPAFENONE HYDROCHLORIDE [Concomitant]
     Route: 065
  16. VIOXX [Suspect]
     Indication: RHEUMATOID ARTHRITIS
     Route: 048
     Dates: start: 20010101
  17. VIOXX [Suspect]
     Route: 048
  18. COUMADIN [Concomitant]
     Route: 065

REACTIONS (12)
  - ANEURYSM [None]
  - ANXIETY [None]
  - ATRIAL FIBRILLATION [None]
  - CEREBRAL HAEMORRHAGE [None]
  - CEREBROVASCULAR ACCIDENT [None]
  - CONVULSION [None]
  - DEPRESSION [None]
  - DYSPEPSIA [None]
  - GOUT [None]
  - HYPOKALAEMIA [None]
  - INJURY [None]
  - STRESS SYMPTOMS [None]
